FAERS Safety Report 17255272 (Version 1)
Quarter: 2020Q1

REPORT INFORMATION
  Report Type: Spontaneous
  Country: US (occurrence: US)
  Receive Date: 20200110
  Receipt Date: 20200110
  Transmission Date: 20200409
  Serious: No
  Sender: FDA-Public Use
  Company Number: US-PRINSTON PHARMACEUTICAL INC.-2019PRN00913

PATIENT
  Age: 37 Year
  Sex: Female
  Weight: 74.83 kg

DRUGS (2)
  1. RISPERIDONE. [Suspect]
     Active Substance: RISPERIDONE
     Indication: AUTISM SPECTRUM DISORDER
     Dosage: 1 TABLETS, 1X/DAY IN THE MORNING
     Route: 048
     Dates: start: 2019, end: 20190917
  2. RISPERIDONE. [Suspect]
     Active Substance: RISPERIDONE
     Indication: AUTISM SPECTRUM DISORDER
     Dosage: 1 TABLETS, 1X/DAY IN THE EVENING
     Route: 048
     Dates: start: 20190918, end: 20191031

REACTIONS (7)
  - Drug ineffective [Recovered/Resolved]
  - Somnolence [Unknown]
  - Menstrual disorder [Not Recovered/Not Resolved]
  - Aggression [Not Recovered/Not Resolved]
  - Amenorrhoea [Unknown]
  - Menstruation delayed [Unknown]
  - Hypomenorrhoea [Unknown]

NARRATIVE: CASE EVENT DATE: 2019
